FAERS Safety Report 9721651 (Version 2)
Quarter: 2013Q4

REPORT INFORMATION
  Report Type: Spontaneous
  Country: US (occurrence: US)
  Receive Date: 20131201
  Receipt Date: 20131201
  Transmission Date: 20140711
  Serious: No
  Sender: FDA-Public Use
  Company Number: US-ABBVIE-13P-163-1148044-00

PATIENT
  Age: 71 Year
  Sex: Male
  Weight: 91.71 kg

DRUGS (12)
  1. ANDROGEL [Suspect]
     Indication: BLOOD TESTOSTERONE DECREASED
     Dates: start: 201212, end: 201307
  2. ANDROGEL [Suspect]
     Dosage: 6 PUMPS PER DAY
     Dates: start: 201307, end: 201309
  3. ANDROGEL [Suspect]
     Indication: PRODUCT USED FOR UNKNOWN INDICATION
  4. HEART MEDICATION [Concomitant]
     Indication: ATRIAL FIBRILLATION
  5. METORPOLOL [Concomitant]
     Indication: ATRIAL FIBRILLATION
  6. OMEPRAZOLE [Concomitant]
     Indication: HIATUS HERNIA
  7. LISINOPRIL [Concomitant]
     Indication: HYPERTENSION
  8. ATORVASTATIN [Concomitant]
     Indication: BLOOD CHOLESTEROL INCREASED
  9. WARFARIN [Concomitant]
     Indication: ATRIAL FIBRILLATION
  10. LUNESTA [Concomitant]
     Indication: INSOMNIA
  11. MIRTAZAPINE [Concomitant]
     Indication: INSOMNIA
  12. LEVOTHYROXINE [Concomitant]
     Indication: HYPOTHYROIDISM

REACTIONS (1)
  - Blood testosterone abnormal [Not Recovered/Not Resolved]
